FAERS Safety Report 17745790 (Version 1)
Quarter: 2020Q2

REPORT INFORMATION
  Report Type: Spontaneous
  Country: US (occurrence: US)
  Receive Date: 20200505
  Receipt Date: 20200505
  Transmission Date: 20200714
  Serious: Yes (Disabling, Other)
  Sender: FDA-Public Use
  Company Number: None

PATIENT
  Age: 37 Year
  Sex: Male
  Weight: 123.75 kg

DRUGS (8)
  1. INVEGA SUSTENNA [Suspect]
     Active Substance: PALIPERIDONE PALMITATE
     Indication: SCHIZOPHRENIA
     Dosage: ?          OTHER FREQUENCY:1 MONTH INJECTION;?
     Route: 030
  2. GENERIC ANTI HISTAMINE [Concomitant]
  3. MULTIVITAMINS [Concomitant]
     Active Substance: VITAMINS
  4. ZOLOFT [Concomitant]
     Active Substance: SERTRALINE HYDROCHLORIDE
  5. OMEPRAZOLE. [Concomitant]
     Active Substance: OMEPRAZOLE
  6. FISH OIL [Concomitant]
     Active Substance: FISH OIL
  7. INVEGA SUSTENNA [Concomitant]
     Active Substance: PALIPERIDONE PALMITATE
  8. TYLENOL [Concomitant]
     Active Substance: ACETAMINOPHEN

REACTIONS (15)
  - Fatigue [None]
  - Hyperaesthesia [None]
  - Delirium [None]
  - Nervous system disorder [None]
  - General physical health deterioration [None]
  - Fear of death [None]
  - Sleep disorder [None]
  - Palpitations [None]
  - Apathy [None]
  - Depression [None]
  - Cognitive disorder [None]
  - Vertigo [None]
  - Pain [None]
  - Malaise [None]
  - Insomnia [None]

NARRATIVE: CASE EVENT DATE: 20170401
